FAERS Safety Report 9625383 (Version 1)
Quarter: 2013Q4

REPORT INFORMATION
  Report Type: Spontaneous
  Country: US (occurrence: US)
  Receive Date: 20131016
  Receipt Date: 20131016
  Transmission Date: 20140711
  Serious: No
  Sender: FDA-Public Use
  Company Number: US-PFIZER INC-2013291889

PATIENT
  Sex: Male

DRUGS (1)
  1. VIAGRA [Suspect]
     Dosage: 50 MG, UNK

REACTIONS (5)
  - Drug ineffective [Unknown]
  - Scrotal disorder [Unknown]
  - Flushing [Unknown]
  - Erythema [Unknown]
  - Feeling hot [Unknown]
